FAERS Safety Report 8071014-8 (Version None)
Quarter: 2012Q1

REPORT INFORMATION
  Report Type: 
  Country: None (occurrence: None)
  Receive Date: 20120125
  Receipt Date: 20120124
  Transmission Date: 20120608
  Serious: Yes (Life-Threatening)
  Sender: FDA-Public Use
  Company Number: FR-ROCHE-1033107

PATIENT
  Sex: Male

DRUGS (2)
  1. MYCOPHENOLATE MOFETIL (CELLCEPT) [Suspect]
     Indication: TRANSPLANT REJECTION
     Route: 002
     Dates: start: 20120122, end: 20120122
  2. METHYLPREDNISOLONE [Suspect]
     Indication: TRANSPLANT REJECTION
     Dosage: FORM: POWDER. AND SOLVENT FOR SOLUTION FOR INFUSION.
     Route: 042
     Dates: start: 20120121, end: 20120122

REACTIONS (2)
  - GRAFT THROMBOSIS [None]
  - REMOVAL OF RENAL TRANSPLANT [None]
